FAERS Safety Report 10027585 (Version 2)
Quarter: 2014Q2

REPORT INFORMATION
  Report Type: Report from Study
  Country: CH (occurrence: CH)
  Receive Date: 20140321
  Receipt Date: 20140428
  Transmission Date: 20141212
  Serious: Yes (Hospitalization)
  Sender: FDA-Public Use
  Company Number: CH-ROCHE-1365612

PATIENT
  Age: 61 Year
  Sex: 0

DRUGS (2)
  1. TRASTUZUMAB [Suspect]
     Indication: BREAST CANCER
     Dosage: LAST DOSE PRIOR TO EVENT 17/FEB/2014
     Route: 042
     Dates: start: 20140127, end: 20140310
  2. PERTUZUMAB [Suspect]
     Indication: BREAST CANCER
     Dosage: LAST DOSE PRIOR TO EVENT 17/FEB/2014
     Route: 042
     Dates: start: 20140127, end: 20140310

REACTIONS (1)
  - Dysphagia [Recovered/Resolved]
